FAERS Safety Report 15002025 (Version 1)
Quarter: 2018Q2

REPORT INFORMATION
  Report Type: Spontaneous
  Country: US (occurrence: US)
  Receive Date: 20180521
  Receipt Date: 20180521
  Transmission Date: 20180711
  Serious: No
  Sender: FDA-Public Use
  Company Number: None

PATIENT
  Age: 40 Year
  Sex: Male

DRUGS (12)
  1. FAMOTIDINE. [Concomitant]
     Active Substance: FAMOTIDINE
  2. OXYCODONE [Concomitant]
     Active Substance: OXYCODONE
  3. TACROLIMUS. [Concomitant]
     Active Substance: TACROLIMUS
  4. FEXOFENADINE [Concomitant]
     Active Substance: FEXOFENADINE\FEXOFENADINE HYDROCHLORIDE
  5. LOPERAMIDE [Concomitant]
     Active Substance: LOPERAMIDE
  6. ONDANSETRON [Concomitant]
     Active Substance: ONDANSETRON
  7. URSODIAL [Concomitant]
  8. VANCOMYCIN PO [Concomitant]
  9. CYCLOPHOSPHAMIDE. [Suspect]
     Active Substance: CYCLOPHOSPHAMIDE
     Indication: NEOPLASM MALIGNANT
     Route: 042
     Dates: start: 20180210, end: 20180211
  10. CASPOFUNGIN [Concomitant]
     Active Substance: CASPOFUNGIN
  11. CHLORHEXADINE [Concomitant]
     Active Substance: CHLORHEXIDINE
  12. PHYTONADIONE. [Concomitant]
     Active Substance: PHYTONADIONE

REACTIONS (8)
  - Fluid retention [None]
  - Aspartate aminotransferase increased [None]
  - Alanine aminotransferase increased [None]
  - Hyperbilirubinaemia [None]
  - Respiratory failure [None]
  - Depression [None]
  - Fluid overload [None]
  - Ascites [None]

NARRATIVE: CASE EVENT DATE: 20180305
